FAERS Safety Report 8618500-7 (Version None)
Quarter: 2012Q3

REPORT INFORMATION
  Report Type: 
  Country: None (occurrence: None)
  Receive Date: 20120814
  Receipt Date: 20120814
  Transmission Date: 20120928
  Serious: Yes (Hospitalization)
  Sender: FDA-Public Use
  Company Number: None

PATIENT
  Sex: Male
  Weight: 65.7 kg

DRUGS (2)
  1. CISPLATIN [Suspect]
     Dosage: 189MG, 182MG
     Dates: start: 20120612
  2. CISPLATIN [Suspect]
     Dosage: 189MG, 182MG
     Dates: start: 20120521

REACTIONS (5)
  - VOMITING [None]
  - WEIGHT DECREASED [None]
  - RENAL FAILURE ACUTE [None]
  - NAUSEA [None]
  - DEHYDRATION [None]
